FAERS Safety Report 9809996 (Version 11)
Quarter: 2015Q2

REPORT INFORMATION
  Report Type: Spontaneous
  Country: US (occurrence: US)
  Receive Date: 20140110
  Receipt Date: 20150623
  Transmission Date: 20150821
  Serious: Yes (Hospitalization, Other)
  Sender: FDA-Public Use
  Company Number: US-SANOFI-AVENTIS-2013SA068339

PATIENT
  Age: 56 Year
  Sex: Male
  Weight: 123 kg

DRUGS (37)
  1. NAPROXEN. [Concomitant]
     Active Substance: NAPROXEN
  2. LIPITOR [Concomitant]
     Active Substance: ATORVASTATIN CALCIUM
  3. LYRICA [Concomitant]
     Active Substance: PREGABALIN
     Dates: start: 20101210
  4. ENDOCET [Concomitant]
     Active Substance: ACETAMINOPHEN\OXYCODONE HYDROCHLORIDE
     Dates: start: 20110823
  5. TRAMADOL [Concomitant]
     Active Substance: TRAMADOL
     Dosage: Q8H/Q8H
     Dates: start: 20121009, end: 20130325
  6. CIPRO [Concomitant]
     Active Substance: CIPROFLOXACIN HYDROCHLORIDE
     Dosage: INTRAVENOUS PIGGYBACK EVERY 12 HOURS
     Route: 042
  7. VANCOMYCIN [Concomitant]
     Active Substance: VANCOMYCIN
  8. PLAVIX [Suspect]
     Active Substance: CLOPIDOGREL BISULFATE
     Indication: MYOCARDIAL INFARCTION
     Route: 048
     Dates: start: 20100505, end: 20100813
  9. CELEBREX [Concomitant]
     Active Substance: CELECOXIB
  10. HYDROCODONE [Concomitant]
     Active Substance: HYDROCODONE
  11. CYCLOBENZAPRINE HYDROCHLORIDE. [Concomitant]
     Active Substance: CYCLOBENZAPRINE HYDROCHLORIDE
     Dates: start: 20100311
  12. ASPIRIN. [Concomitant]
     Active Substance: ASPIRIN
     Route: 048
  13. ACETAMINOPHEN. [Concomitant]
     Active Substance: ACETAMINOPHEN
     Route: 048
     Dates: start: 201004
  14. LOPRESSOR [Concomitant]
     Active Substance: METOPROLOL TARTRATE
     Route: 048
  15. DIAZEPAM. [Concomitant]
     Active Substance: DIAZEPAM
     Dates: start: 20110824
  16. PLAVIX [Suspect]
     Active Substance: CLOPIDOGREL BISULFATE
     Indication: STENT PLACEMENT
     Route: 048
     Dates: start: 20100505, end: 20100813
  17. PRILOSEC [Concomitant]
     Active Substance: OMEPRAZOLE MAGNESIUM
  18. PIPERACILLIN [Concomitant]
     Active Substance: PIPERACILLIN
  19. PREVACID [Concomitant]
     Active Substance: LANSOPRAZOLE
  20. CHLORZOXAZONE. [Concomitant]
     Active Substance: CHLORZOXAZONE
     Dosage: 500 MG?2X A DAY
  21. KETOROLAC [Concomitant]
     Active Substance: KETOROLAC\KETOROLAC TROMETHAMINE
     Route: 030
     Dates: start: 201004
  22. ZOLOFT [Concomitant]
     Active Substance: SERTRALINE HYDROCHLORIDE
     Route: 048
  23. OXYCONTIN [Concomitant]
     Active Substance: OXYCODONE HYDROCHLORIDE
  24. METOPROLOL [Concomitant]
     Active Substance: METOPROLOL
     Dosage: 50 MG 1 TABLET A DAY
     Route: 048
  25. VALIUM [Concomitant]
     Active Substance: DIAZEPAM
  26. PERPHENAZINE/DIAZEPAM/AMITRIPTYLINE HYDROCHLORIDE [Concomitant]
     Dosage: 25 MG?1 AT BED TIME
  27. GABAPENTIN. [Concomitant]
     Active Substance: GABAPENTIN
     Dates: start: 20121004
  28. ZESTRIL [Concomitant]
     Active Substance: LISINOPRIL
     Route: 048
  29. ESOMEPRAZOLE MAGNESIUM. [Concomitant]
     Active Substance: ESOMEPRAZOLE MAGNESIUM
  30. MORPHINE [Concomitant]
     Active Substance: MORPHINE
     Route: 048
  31. LISINOPRIL. [Concomitant]
     Active Substance: LISINOPRIL
  32. BACLOFEN. [Concomitant]
     Active Substance: BACLOFEN
     Dates: end: 20130325
  33. BACLOFEN. [Concomitant]
     Active Substance: BACLOFEN
     Dates: start: 20120822, end: 20120822
  34. TYLENOL [Concomitant]
     Active Substance: ACETAMINOPHEN
  35. ANCEF [Concomitant]
     Active Substance: CEFAZOLIN SODIUM
     Dosage: INTRAVENOUS PIGGUBACK EVEY 8 HOURS
     Route: 042
  36. SOMA [Concomitant]
     Active Substance: CARISOPRODOL
     Indication: PAIN
  37. ETODOLAC. [Concomitant]
     Active Substance: ETODOLAC
     Dosage: 500 MG?1 TABLET 2X A DAY

REACTIONS (3)
  - Haemorrhage [Unknown]
  - Nerve injury [Not Recovered/Not Resolved]
  - Neuralgia [Not Recovered/Not Resolved]

NARRATIVE: CASE EVENT DATE: 201008
